FAERS Safety Report 25573590 (Version 1)
Quarter: 2025Q3

REPORT INFORMATION
  Report Type: Spontaneous
  Country: CA (occurrence: CA)
  Receive Date: 20250717
  Receipt Date: 20250717
  Transmission Date: 20251021
  Serious: Yes (Other)
  Sender: MYLAN
  Company Number: CA-MYLANLABS-2025M1059274

PATIENT
  Age: 30 Year
  Sex: Female

DRUGS (5)
  1. DIVALPROEX SODIUM [Suspect]
     Active Substance: DIVALPROEX SODIUM
     Indication: Epilepsy
     Dosage: 1 DOSAGE FORM, QD (1 EVERY 1 DAYS)
  2. CLOBAZAM [Concomitant]
     Active Substance: CLOBAZAM
  3. LEVOCARNITINE [Concomitant]
     Active Substance: LEVOCARNITINE
  4. SINEMET [Concomitant]
     Active Substance: CARBIDOPA\LEVODOPA
  5. STIRIPENTOL [Concomitant]
     Active Substance: STIRIPENTOL

REACTIONS (1)
  - Seizure [Recovered/Resolved]
